FAERS Safety Report 8272352-6 (Version None)
Quarter: 2012Q1

REPORT INFORMATION
  Report Type: 
  Country: None (occurrence: None)
  Receive Date: 20120321
  Receipt Date: 20110831
  Transmission Date: 20120608
  Serious: Yes (Other)
  Sender: FDA-Public Use
  Company Number: 2011SP041232

PATIENT
  Age: 62 Year
  Sex: Female

DRUGS (3)
  1. PLAVIX [Concomitant]
  2. PEG-INTRON [Suspect]
     Indication: HEPATITIS C
     Dosage: 150 MCG;;SC
     Route: 058
     Dates: start: 20110830
  3. RIBAVIRIN [Suspect]
     Indication: PRODUCT USED FOR UNKNOWN INDICATION
     Dosage: 400 MG;;
     Dates: start: 20110830

REACTIONS (6)
  - HYPERTENSION [None]
  - BACK PAIN [None]
  - NERVOUSNESS [None]
  - HEADACHE [None]
  - ANXIETY [None]
  - MUSCLE SPASMS [None]
